FAERS Safety Report 5063063-9 (Version None)
Quarter: 2006Q3

REPORT INFORMATION
  Report Type: 
  Country: None (occurrence: None)
  Receive Date: 20060724
  Receipt Date: 20060707
  Transmission Date: 20061208
  Serious: Yes (Other)
  Sender: FDA-Public Use
  Company Number: C-06-0032

PATIENT
  Age: 79 Year
  Sex: Female
  Weight: 55.7924 kg

DRUGS (11)
  1. LACTULOSE [Suspect]
     Indication: CONSTIPATION
     Dosage: 2 TBLSP, 2X DAY, ORAL
     Route: 048
     Dates: start: 20060101, end: 20060601
  2. LACTULOSE [Suspect]
  3. ENBREL [Concomitant]
  4. NAPROXEN [Concomitant]
  5. ACTONEL [Concomitant]
  6. INDERAL [Concomitant]
  7. HYDROCHLOROTHIAZIDE [Concomitant]
  8. LANOXIN [Concomitant]
  9. CYTOTEC [Concomitant]
  10. CALCIUM PILLS [Concomitant]
  11. ZINC [Concomitant]

REACTIONS (2)
  - DRUG EFFECT DECREASED [None]
  - INCORRECT DOSE ADMINISTERED [None]
